FAERS Safety Report 12010306 (Version 1)
Quarter: 2016Q1

REPORT INFORMATION
  Report Type: Spontaneous
  Country: CA (occurrence: None)
  Receive Date: 20160204
  Receipt Date: 20160204
  Transmission Date: 20160526
  Serious: Yes (Hospitalization)
  Sender: FDA-Public Use
  Company Number: None

PATIENT
  Age: 63 Year
  Sex: Male
  Weight: 98 kg

DRUGS (3)
  1. CASODEX [Suspect]
     Active Substance: BICALUTAMIDE
     Dates: end: 20120201
  2. COUMADIN [Concomitant]
     Active Substance: WARFARIN SODIUM
  3. ZOLADEX [Suspect]
     Active Substance: GOSERELIN ACETATE
     Dates: end: 20120417

REACTIONS (4)
  - Chest pain [None]
  - Radiation injury [None]
  - Haematuria [None]
  - Atrial fibrillation [None]

NARRATIVE: CASE EVENT DATE: 20151106
